FAERS Safety Report 21722829 (Version 2)
Quarter: 2022Q4

REPORT INFORMATION
  Report Type: Spontaneous
  Country: JP (occurrence: JP)
  Receive Date: 20221213
  Receipt Date: 20221219
  Transmission Date: 20230113
  Serious: Yes (Other)
  Sender: FDA-Public Use
  Company Number: JP-MLMSERVICE-20221205-3949553-2

PATIENT
  Age: 65 Year
  Sex: Female

DRUGS (7)
  1. CISPLATIN [Suspect]
     Active Substance: CISPLATIN
     Indication: Anal squamous cell carcinoma
     Dosage: 80 MG/BODY ON DAY 8, DCS
  2. CISPLATIN [Suspect]
     Active Substance: CISPLATIN
     Dosage: 70 MG/BODY, DAY 8
  3. CISPLATIN [Suspect]
     Active Substance: CISPLATIN
     Dosage: 60 MG/BODY, DAY 8
  4. DOCETAXEL [Suspect]
     Active Substance: DOCETAXEL
     Indication: Anal squamous cell carcinoma
     Dosage: 70 MG/BODY ON DAY 8, DCS
  5. DOCETAXEL [Suspect]
     Active Substance: DOCETAXEL
     Dosage: 60 MG/BODY, DAY 8
  6. DOCETAXEL [Suspect]
     Active Substance: DOCETAXEL
     Dosage: 50 MG/BODY, DAY 8
  7. GIMERACIL\OTERACIL\TEGAFUR [Suspect]
     Active Substance: GIMERACIL\OTERACIL\TEGAFUR
     Indication: Anal squamous cell carcinoma
     Dosage: 100 MG DAILY FOR DAYS 1-14, FOLLOWED BY A 1-WEEK BREAK, DCS

REACTIONS (2)
  - Neutropenia [Unknown]
  - Off label use [Unknown]
